FAERS Safety Report 10248647 (Version 1)
Quarter: 2014Q2

REPORT INFORMATION
  Report Type: Spontaneous
  Country: CH (occurrence: CH)
  Receive Date: 20140620
  Receipt Date: 20140620
  Transmission Date: 20141212
  Serious: Yes (Disabling)
  Sender: FDA-Public Use
  Company Number: CH-ASTRAZENECA-2014SE44291

PATIENT
  Age: 85 Year
  Sex: Male

DRUGS (2)
  1. CRESTOR [Suspect]
     Route: 048
  2. CRESTOR [Suspect]
     Route: 048
     Dates: start: 201309

REACTIONS (3)
  - Tendon rupture [Recovered/Resolved]
  - Tendon rupture [Unknown]
  - Gait disturbance [Unknown]
